FAERS Safety Report 5325188-X (Version None)
Quarter: 2007Q2

REPORT INFORMATION
  Report Type: 
  Country: None (occurrence: None)
  Receive Date: 20070515
  Receipt Date: 20070511
  Transmission Date: 20071010
  Serious: Yes (Other)
  Sender: FDA-Public Use
  Company Number: B0470339A

PATIENT
  Age: 19 Year
  Sex: Female

DRUGS (1)
  1. RELENZA [Suspect]
     Indication: INFLUENZA
     Route: 055

REACTIONS (2)
  - ALTERED STATE OF CONSCIOUSNESS [None]
  - GAIT DISTURBANCE [None]
